FAERS Safety Report 8305420-0 (Version None)
Quarter: 2012Q2

REPORT INFORMATION
  Report Type: 
  Country: None (occurrence: None)
  Receive Date: 20120423
  Receipt Date: 20120416
  Transmission Date: 20120825
  Serious: Yes (Hospitalization, Other)
  Sender: FDA-Public Use
  Company Number: PHHY2012IT025332

PATIENT
  Sex: Female

DRUGS (10)
  1. ENALAPRIL MALEATE [Concomitant]
     Indication: HYPERTENSION
  2. SINTROM [Suspect]
     Indication: MYOCARDIAL ISCHAEMIA
     Route: 048
     Dates: start: 20111001, end: 20120303
  3. PAROXETINE [Concomitant]
  4. OMEPRAZOLE [Concomitant]
  5. TICLOPIDINE HCL [Suspect]
     Indication: MYOCARDIAL ISCHAEMIA
     Dosage: 2 DF
     Dates: start: 20111001, end: 20120310
  6. FUROSEMIDE [Concomitant]
     Indication: HYPERTENSION
  7. SINTROM [Suspect]
     Dosage: 3 MG, QD
     Route: 048
     Dates: start: 20120304, end: 20120310
  8. NEBIVOLOL [Concomitant]
  9. ATORVASTATIN [Concomitant]
  10. DERMATRANS /ITA/ [Concomitant]

REACTIONS (7)
  - HAEMOGLOBIN DECREASED [None]
  - INTERNATIONAL NORMALISED RATIO INCREASED [None]
  - HAEMATURIA [None]
  - COAGULOPATHY [None]
  - OVERDOSE [None]
  - GINGIVAL BLEEDING [None]
  - BLOOD PRESSURE SYSTOLIC INCREASED [None]
